FAERS Safety Report 13668219 (Version 1)
Quarter: 2017Q2

REPORT INFORMATION
  Report Type: Report from Study
  Country: US (occurrence: US)
  Receive Date: 20170620
  Receipt Date: 20170620
  Transmission Date: 20170830
  Serious: Yes (Hospitalization)
  Sender: FDA-Public Use
  Company Number: US-SUN PHARMACEUTICAL INDUSTRIES LTD-2017US-143398

PATIENT
  Age: 68 Year
  Sex: Male
  Weight: 82.54 kg

DRUGS (4)
  1. INCB050465 [Suspect]
     Active Substance: INVESTIGATIONAL PRODUCT
     Dosage: 2.5 MG, QOD
     Route: 048
     Dates: start: 2017
  2. BACTRIM DS [Suspect]
     Active Substance: SULFAMETHOXAZOLE\TRIMETHOPRIM
     Indication: ANTIFUNGAL PROPHYLAXIS
     Dosage: 1 DF, BID, M-W-F
     Route: 048
     Dates: start: 20170421, end: 20170515
  3. PEMBROLIZUMAB. [Suspect]
     Active Substance: PEMBROLIZUMAB
     Indication: NON-SMALL CELL LUNG CANCER
     Dosage: 200 MG, Q3WEEKS
     Route: 042
     Dates: start: 20161209
  4. INCB050465 [Suspect]
     Active Substance: INVESTIGATIONAL PRODUCT
     Indication: NON-SMALL CELL LUNG CANCER
     Dosage: 2.5 MG, QOD
     Route: 048
     Dates: start: 20161209, end: 20170430

REACTIONS (2)
  - Condition aggravated [Recovered/Resolved]
  - Pyrexia [Recovered/Resolved]

NARRATIVE: CASE EVENT DATE: 20170430
